FAERS Safety Report 9115286 (Version 1)
Quarter: 2013Q1

REPORT INFORMATION
  Report Type: Spontaneous
  Country: US (occurrence: None)
  Receive Date: 20130220
  Receipt Date: 20130220
  Transmission Date: 20140127
  Serious: Yes (Hospitalization)
  Sender: FDA-Public Use
  Company Number: None

PATIENT
  Sex: Female
  Weight: 90.9 kg

DRUGS (2)
  1. CISPLATIN [Suspect]
     Dates: end: 20121002
  2. PEMETREXED [Suspect]
     Dates: end: 20121002

REACTIONS (9)
  - Fatigue [None]
  - Malaise [None]
  - Hypotension [None]
  - Acute myocardial infarction [None]
  - Cardiogenic shock [None]
  - Arteriosclerosis coronary artery [None]
  - Dyslipidaemia [None]
  - Hypothyroidism [None]
  - Post procedural haemorrhage [None]
